FAERS Safety Report 23803701 (Version 1)
Quarter: 2024Q2

REPORT INFORMATION
  Report Type: Spontaneous
  Country: US (occurrence: None)
  Receive Date: 20240430
  Receipt Date: 20240430
  Transmission Date: 20240715
  Serious: Yes (Hospitalization)
  Sender: FDA-Public Use
  Company Number: None

PATIENT
  Age: 66 Year
  Sex: Male

DRUGS (1)
  1. GLIPIZIDE [Suspect]
     Active Substance: GLIPIZIDE
     Indication: Diabetes mellitus
     Dosage: 10 MG BID PO
     Dates: start: 20140121, end: 20230323

REACTIONS (4)
  - Aphasia [None]
  - Confusional state [None]
  - Hypoglycaemia [None]
  - Speech disorder [None]

NARRATIVE: CASE EVENT DATE: 20230323
